FAERS Safety Report 6315679-7 (Version None)
Quarter: 2009Q3

REPORT INFORMATION
  Report Type: 
  Country: None (occurrence: None)
  Receive Date: 20090818
  Receipt Date: 20090806
  Transmission Date: 20100115
  Serious: Yes (Hospitalization)
  Sender: FDA-Public Use
  Company Number: 8050179

PATIENT
  Age: 37 Year
  Sex: Female
  Weight: 110 kg

DRUGS (6)
  1. CIMZIA [Suspect]
     Indication: CROHN'S DISEASE
     Dosage: 400 MG /M SC
     Route: 058
     Dates: start: 20090408
  2. CALCIUM W/VITAMIN D [Concomitant]
  3. GLYBURIDE [Concomitant]
  4. LISINOPRIL [Concomitant]
  5. ASACOL [Concomitant]
  6. METFORMIN HCL [Concomitant]

REACTIONS (1)
  - GALLBLADDER PAIN [None]
